FAERS Safety Report 6695249-1 (Version None)
Quarter: 2010Q2

REPORT INFORMATION
  Report Type: 
  Country: None (occurrence: None)
  Receive Date: 20100423
  Receipt Date: 20100412
  Transmission Date: 20101027
  Serious: Yes (Disabling)
  Sender: FDA-Public Use
  Company Number: US-ELI_LILLY_AND_COMPANY-US201003001266

PATIENT
  Sex: Female
  Weight: 64.626 kg

DRUGS (11)
  1. FORTEO [Suspect]
     Indication: OSTEOPOROSIS
     Dosage: 20 UG, DAILY (1/D)
     Dates: start: 20100126, end: 20100228
  2. DIAZEPAM [Concomitant]
     Dosage: 5 MG, AS NEEDED
  3. TRAMADOL HCL [Concomitant]
     Dosage: 50 MG, AS NEEDED
  4. BENTYL [Concomitant]
     Dosage: 20 MG, AS NEEDED
  5. COZAAR [Concomitant]
     Dosage: 100 MG, DAILY (1/D)
  6. SIMVASTATIN [Concomitant]
     Dosage: 20 MG, DAILY (1/D)
  7. AMLODIPINE BESYLATE [Concomitant]
     Dosage: 2.5 MG, DAILY (1/D)
  8. VITAMIN D [Concomitant]
     Dosage: 50000 U, WEEKLY (1/W)
  9. CALTRATE + D [Concomitant]
     Dosage: 400 MG, 2/D
  10. SULINDAC [Concomitant]
     Dosage: 150 MG, DAILY (1/D)
  11. SOTALOL HCL [Concomitant]
     Dosage: 45 MG, 2/D

REACTIONS (4)
  - ABASIA [None]
  - ADVERSE DRUG REACTION [None]
  - ANXIETY [None]
  - MOVEMENT DISORDER [None]
